FAERS Safety Report 7736699-1 (Version None)
Quarter: 2011Q3

REPORT INFORMATION
  Report Type: 
  Country: None (occurrence: None)
  Receive Date: 20110908
  Receipt Date: 20110829
  Transmission Date: 20111222
  Serious: Yes (Other)
  Sender: FDA-Public Use
  Company Number: US-AMGEN-USASP2011044787

PATIENT
  Age: 78 Year
  Sex: Male

DRUGS (1)
  1. ENBREL [Suspect]
     Indication: DEMENTIA ALZHEIMER'S TYPE
     Dosage: 25 MG, Q2WK
     Dates: start: 20100917

REACTIONS (3)
  - SPINAL COLUMN STENOSIS [None]
  - SPONDYLITIS [None]
  - ABDOMINAL PAIN [None]
